FAERS Safety Report 7906155-6 (Version None)
Quarter: 2011Q4

REPORT INFORMATION
  Report Type: 
  Country: None (occurrence: None)
  Receive Date: 20111109
  Receipt Date: 20111109
  Transmission Date: 20120403
  Serious: No
  Sender: FDA-Public Use
  Company Number: None

PATIENT
  Sex: Female
  Weight: 49.8957 kg

DRUGS (2)
  1. ACETAMINOPHEN AND CODEINE PHOSPHATE [Suspect]
     Indication: BACK PAIN
     Dosage: 300 MG/30 MG 1 EV. 4 AS NEEDED
     Dates: start: 20111024
  2. TRAMADOL HCL [Suspect]
     Indication: BACK PAIN
     Dosage: 50 MG 1 EV. 6 HRS AS NEEDED
     Dates: start: 20111028

REACTIONS (6)
  - NAUSEA [None]
  - ASTHENIA [None]
  - MUSCULAR WEAKNESS [None]
  - SYNCOPE [None]
  - CHILLS [None]
  - HYPOAESTHESIA [None]
